FAERS Safety Report 9103658 (Version 10)
Quarter: 2015Q1

REPORT INFORMATION
  Report Type: Report from Study
  Country: BR (occurrence: BR)
  Receive Date: 20130218
  Receipt Date: 20150202
  Transmission Date: 20150721
  Serious: Yes (Hospitalization, Other)
  Sender: FDA-Public Use
  Company Number: BR-ROCHE-1141968

PATIENT
  Age: 37 Year
  Sex: Female
  Weight: 60 kg

DRUGS (18)
  1. VENLAFAXINE [Concomitant]
     Active Substance: VENLAFAXINE HYDROCHLORIDE
     Route: 065
  2. PREDNISONE. [Concomitant]
     Active Substance: PREDNISONE
  3. DEFLAZACORT [Concomitant]
     Active Substance: DEFLAZACORT
  4. ACTEMRA [Suspect]
     Active Substance: TOCILIZUMAB
     Indication: RHEUMATOID ARTHRITIS
     Route: 042
     Dates: start: 20110203, end: 20120917
  5. THIORIDAZINE HYDROCHLORIDE. [Concomitant]
     Active Substance: THIORIDAZINE HYDROCHLORIDE
  6. TOPIRAMATE. [Concomitant]
     Active Substance: TOPIRAMATE
  7. ACTEMRA [Suspect]
     Active Substance: TOCILIZUMAB
     Dosage: LAST DOSE PRIOR TO SAE: 01/JUL/2013
     Route: 042
     Dates: start: 20120203, end: 20131001
  8. MABTHERA [Suspect]
     Active Substance: RITUXIMAB
     Indication: RHEUMATOID ARTHRITIS
     Dosage: RECEIVED 2 CYCLES
     Route: 042
     Dates: start: 20100101, end: 201405
  9. VALPROIC ACID. [Concomitant]
     Active Substance: VALPROIC ACID
  10. GLUCOSAMINE SULFATE [Concomitant]
     Active Substance: GLUCOSAMINE SULFATE
  11. RIVOTRIL [Suspect]
     Active Substance: CLONAZEPAM
     Indication: SLEEP DISORDER THERAPY
     Dosage: 2.5 MG/ML, 10-15 DROPS
     Route: 048
     Dates: start: 2007
  12. CITRIC ACID [Concomitant]
     Active Substance: CITRIC ACID MONOHYDRATE
     Route: 065
  13. TRAMAL [Concomitant]
     Active Substance: TRAMADOL
  14. METHOTREXATE [Concomitant]
     Active Substance: METHOTREXATE
  15. CYMBALTA [Concomitant]
     Active Substance: DULOXETINE HYDROCHLORIDE
  16. DONAREN [Concomitant]
     Active Substance: TRAZODONE HYDROCHLORIDE
  17. ACTEMRA [Suspect]
     Active Substance: TOCILIZUMAB
     Route: 042
     Dates: start: 2010
  18. VITAMIN C [Concomitant]
     Active Substance: ASCORBIC ACID

REACTIONS (34)
  - Gastritis [Recovering/Resolving]
  - Laryngeal oedema [Unknown]
  - Epigastric discomfort [Unknown]
  - Urinary tract infection [Recovered/Resolved]
  - Confusional state [Recovered/Resolved]
  - Breast swelling [Recovered/Resolved]
  - Weight increased [Recovering/Resolving]
  - Hypersensitivity [Recovered/Resolved]
  - Arthralgia [Unknown]
  - Osteoarthritis [Unknown]
  - Vomiting [Unknown]
  - Pruritus [Not Recovered/Not Resolved]
  - Vomiting [Recovered/Resolved]
  - Swelling [Unknown]
  - Memory impairment [Not Recovered/Not Resolved]
  - Weight increased [Unknown]
  - White blood cell count decreased [Not Recovered/Not Resolved]
  - Amnesia [Recovered/Resolved]
  - Pain [Not Recovered/Not Resolved]
  - Gastric disorder [Unknown]
  - Bone disorder [Not Recovered/Not Resolved]
  - Pharyngitis [Recovered/Resolved]
  - Leukopenia [Recovered/Resolved]
  - Breast pain [Recovered/Resolved]
  - Menstrual disorder [Not Recovered/Not Resolved]
  - Abasia [Unknown]
  - Rheumatoid arthritis [Unknown]
  - Mass [Not Recovered/Not Resolved]
  - Swelling [Not Recovered/Not Resolved]
  - Malaise [Unknown]
  - Uterine disorder [Recovered/Resolved]
  - Asthenia [Unknown]
  - Neutropenia [Recovered/Resolved]
  - Infection [Unknown]

NARRATIVE: CASE EVENT DATE: 2010
